FAERS Safety Report 8484908-6 (Version None)
Quarter: 2012Q3

REPORT INFORMATION
  Report Type: 
  Country: None (occurrence: None)
  Receive Date: 20120703
  Receipt Date: 20120628
  Transmission Date: 20120928
  Serious: Yes (Life-Threatening)
  Sender: FDA-Public Use
  Company Number: US-ASTELLAS-2012US005878

PATIENT
  Age: 58 Year
  Sex: Female

DRUGS (8)
  1. MELPHALAN HYDROCHLORIDE [Concomitant]
     Indication: CHEMOTHERAPY
     Dosage: 140 MG/M2, UNKNOWN/D
     Route: 065
  2. MYCOPHENOLATE MOFETIL [Concomitant]
     Indication: PROPHYLAXIS AGAINST GRAFT VERSUS HOST DISEASE
     Dosage: 2.25 G, UID/QD
     Route: 065
  3. FLUDARABINE PHOSPHATE [Concomitant]
     Indication: CHEMOTHERAPY
     Dosage: 160 MG/M2, UNKNOWN/D
     Route: 065
  4. CYCLOPHOSPHAMIDE [Concomitant]
     Indication: PROPHYLAXIS AGAINST GRAFT VERSUS HOST DISEASE
     Dosage: 50 MG/M2, UID/QD
     Route: 065
  5. THIOTEPA [Concomitant]
     Indication: CHEMOTHERAPY
     Dosage: 10 MG/KG, UNKNOWN/D
     Route: 065
  6. PROGRAF [Suspect]
     Dosage: 1.4 MG, UID/QD
     Route: 042
  7. SEDATING MEDICATIONS [Concomitant]
     Indication: PRODUCT USED FOR UNKNOWN INDICATION
     Dosage: UNK
     Route: 065
  8. PROGRAF [Suspect]
     Indication: PROPHYLAXIS AGAINST GRAFT VERSUS HOST DISEASE
     Dosage: 0.7 MG, UID/QD
     Route: 042

REACTIONS (1)
  - LOCKED-IN SYNDROME [None]
